FAERS Safety Report 10236013 (Version 1)
Quarter: 2014Q2

REPORT INFORMATION
  Report Type: Spontaneous
  Country: IR (occurrence: None)
  Receive Date: 20140611
  Receipt Date: 20140611
  Transmission Date: 20141212
  Serious: Yes (Hospitalization)
  Sender: FDA-Public Use
  Company Number: 2379305

PATIENT
  Age: 40 Year
  Sex: Female

DRUGS (6)
  1. OXALIPLATIN [Suspect]
     Indication: ADENOCARCINOMA OF COLON
     Dosage: CYCLICAL
     Route: 041
  2. FOLINIC ACID [Concomitant]
  3. FLUOROURACIL [Concomitant]
  4. IRINOTECAN [Concomitant]
  5. THERAPEUTIC RADIOPHARMACEUTICALS [Concomitant]
  6. CAPECITABINE [Concomitant]

REACTIONS (12)
  - Tubulointerstitial nephritis [None]
  - Jaundice [None]
  - Haematuria [None]
  - Oliguria [None]
  - Blood creatinine increased [None]
  - Hyperbilirubinaemia [None]
  - Blood lactate dehydrogenase increased [None]
  - Anaemia [None]
  - Thrombocytopenia [None]
  - Cytology abnormal [None]
  - Renal injury [None]
  - Haemodialysis [None]
